FAERS Safety Report 24171885 (Version 1)
Quarter: 2024Q3

REPORT INFORMATION
  Report Type: Spontaneous
  Country: AU (occurrence: AU)
  Receive Date: 20240805
  Receipt Date: 20240805
  Transmission Date: 20241016
  Serious: Yes (Other)
  Sender: STRIDES
  Company Number: AU-STRIDES ARCOLAB LIMITED-2024SP009604

PATIENT
  Sex: Female

DRUGS (8)
  1. PREDNISOLONE [Suspect]
     Active Substance: PREDNISOLONE
     Indication: Mastitis
     Dosage: UNK
     Route: 065
  2. PREDNISOLONE [Suspect]
     Active Substance: PREDNISOLONE
     Indication: Granuloma
  3. METHOTREXATE [Suspect]
     Active Substance: METHOTREXATE
     Indication: Mastitis
     Dosage: UNK
     Route: 065
  4. METHOTREXATE [Suspect]
     Active Substance: METHOTREXATE
     Indication: Granuloma
  5. MYCOPHENOLATE MOFETIL [Suspect]
     Active Substance: MYCOPHENOLATE MOFETIL
     Indication: Mastitis
     Dosage: UNK
     Route: 065
  6. MYCOPHENOLATE MOFETIL [Suspect]
     Active Substance: MYCOPHENOLATE MOFETIL
     Indication: Granuloma
  7. SIROLIMUS [Suspect]
     Active Substance: SIROLIMUS
     Indication: Mastitis
     Dosage: UNK
     Route: 065
  8. SIROLIMUS [Suspect]
     Active Substance: SIROLIMUS
     Indication: Granuloma

REACTIONS (13)
  - Abortion spontaneous [Unknown]
  - Maternal exposure during pregnancy [Unknown]
  - Drug ineffective [Unknown]
  - Affect lability [Unknown]
  - Hyperglycaemia [Unknown]
  - Gastrointestinal disorder [Unknown]
  - Alopecia [Unknown]
  - Weight increased [Unknown]
  - Diarrhoea [Unknown]
  - Nausea [Unknown]
  - Myopathy [Unknown]
  - Fatigue [Unknown]
  - Off label use [Unknown]
